FAERS Safety Report 20329994 (Version 1)
Quarter: 2022Q1

REPORT INFORMATION
  Report Type: Spontaneous
  Country: PL (occurrence: PL)
  Receive Date: 20220113
  Receipt Date: 20220113
  Transmission Date: 20220424
  Serious: Yes (Other)
  Sender: FDA-Public Use
  Company Number: PL-SUN PHARMACEUTICAL INDUSTRIES LTD-2021R1-314324

PATIENT
  Age: 72 Year
  Sex: Female

DRUGS (5)
  1. ETORICOXIB [Suspect]
     Active Substance: ETORICOXIB
     Indication: Inflammatory pain
     Dosage: UNK
     Route: 048
  2. DICLOFENAC [Suspect]
     Active Substance: DICLOFENAC
     Indication: Osteoarthritis
     Dosage: UNK
     Route: 065
  3. DICLOFENAC [Suspect]
     Active Substance: DICLOFENAC
     Indication: Inflammatory pain
  4. CHONDROITIN SULFATE (BOVINE) [Concomitant]
     Active Substance: CHONDROITIN SULFATE (BOVINE)
     Indication: Pain
     Dosage: 1500 MILLIGRAM, DAILY
     Route: 065
  5. BUPRENORPHINE [Concomitant]
     Active Substance: BUPRENORPHINE
     Indication: Pain
     Dosage: 35 MICROGRAM/H REPLACED EVERY 3 DAYS
     Route: 062

REACTIONS (6)
  - Abdominal pain upper [Recovered/Resolved]
  - Burn oesophageal [Recovered/Resolved]
  - Drug ineffective [Unknown]
  - Rash maculo-papular [Recovered/Resolved]
  - Pruritus [Unknown]
  - Rash pruritic [Recovered/Resolved]
